FAERS Safety Report 10778889 (Version 1)
Quarter: 2015Q1

REPORT INFORMATION
  Report Type: Spontaneous
  Country: US (occurrence: None)
  Receive Date: 20150205
  Receipt Date: 20150205
  Transmission Date: 20150721
  Serious: Yes (Hospitalization)
  Sender: FDA-Public Use
  Company Number: None

PATIENT
  Age: 54 Year
  Sex: Male
  Weight: 141 kg

DRUGS (2)
  1. CISPLATIN. [Suspect]
     Active Substance: CISPLATIN
     Dates: end: 20140521
  2. TYLENOL WITH CODEINE [Concomitant]
     Active Substance: ACETAMINOPHEN\CODEINE PHOSPHATE

REACTIONS (7)
  - Abdominal pain [None]
  - Fluid intake restriction [None]
  - Renal hypertrophy [None]
  - Flatulence [None]
  - Gastrointestinal motility disorder [None]
  - Gallbladder enlargement [None]
  - Hypophagia [None]

NARRATIVE: CASE EVENT DATE: 20140527
